FAERS Safety Report 22308242 (Version 1)
Quarter: 2023Q2

REPORT INFORMATION
  Report Type: Spontaneous
  Country: DE (occurrence: DE)
  Receive Date: 20230511
  Receipt Date: 20230511
  Transmission Date: 20230722
  Serious: Yes (Other)
  Sender: FDA-Public Use
  Company Number: DE-EMBRYOTOX-202104024

PATIENT
  Age: 1 Day
  Sex: Male
  Weight: 3.48 kg

DRUGS (7)
  1. QUETIAPINE [Suspect]
     Active Substance: QUETIAPINE
     Indication: Product used for unknown indication
     Dosage: 800 [MG/D (BIS 400 MG/D) ]/ UNTIL WK 37+1: 400 MG/D, UNTIL WK 38+2: 600 MG/D, AFTERWARDS 800 MG/D
     Route: 064
     Dates: start: 20201020
  2. QUETIAPINE [Suspect]
     Active Substance: QUETIAPINE
     Dosage: 800 [MG/D (BIS 400 MG/D) ]/ UNTIL WK 37+1: 400 MG/D, UNTIL WK 38+2: 600 MG/D, AFTERWARDS 800 MG/D
     Route: 064
  3. QUETIAPINE [Suspect]
     Active Substance: QUETIAPINE
     Dosage: 800 [MG/D (BIS 400 MG/D) ]/ UNTIL WK 37+1: 400 MG/D, UNTIL WK 38+2: 600 MG/D, AFTERWARDS 800 MG/D
     Route: 064
  4. QUETIAPINE [Suspect]
     Active Substance: QUETIAPINE
     Dosage: 800 [MG/D (BIS 400 MG/D) ]/ UNTIL WK 37+1: 400 MG/D, UNTIL WK 38+2: 600 MG/D, AFTERWARDS 800 MG/D
     Route: 064
     Dates: end: 20210717
  5. OLANZAPINE [Concomitant]
     Active Substance: OLANZAPINE
     Indication: Product used for unknown indication
     Route: 064
  6. CLOZAPINE [Concomitant]
     Active Substance: CLOZAPINE
     Indication: Product used for unknown indication
     Route: 064
     Dates: start: 20210716, end: 20210717
  7. Tavor [Concomitant]
     Indication: Product used for unknown indication
     Route: 064
     Dates: start: 20210717, end: 20210717

REACTIONS (3)
  - Hypertonia neonatal [Recovered/Resolved]
  - Tremor neonatal [Unknown]
  - Foetal exposure during pregnancy [Unknown]

NARRATIVE: CASE EVENT DATE: 20210701
